FAERS Safety Report 7125099-3 (Version None)
Quarter: 2010Q4

REPORT INFORMATION
  Report Type: 
  Country: None (occurrence: None)
  Receive Date: 20101129
  Receipt Date: 20101014
  Transmission Date: 20110411
  Serious: Yes (Other)
  Sender: FDA-Public Use
  Company Number: US-AMGEN INC.-USASP2010000146

PATIENT

DRUGS (4)
  1. ENBREL [Suspect]
     Indication: PSORIATIC ARTHROPATHY
     Dosage: 50 MG, UNK
     Dates: start: 20060101
  2. METHOTREXATE [Concomitant]
  3. DOVONEX [Concomitant]
  4. ASPIRIN [Suspect]

REACTIONS (2)
  - DRUG INEFFECTIVE [None]
  - PEPTIC ULCER PERFORATION [None]
